FAERS Safety Report 7525585-8 (Version None)
Quarter: 2011Q2

REPORT INFORMATION
  Report Type: 
  Country: None (occurrence: None)
  Receive Date: 20110606
  Receipt Date: 20110523
  Transmission Date: 20111010
  Serious: Yes (Other)
  Sender: FDA-Public Use
  Company Number: PHHY2011US44069

PATIENT
  Sex: Female

DRUGS (7)
  1. SYNTHROID [Concomitant]
  2. EVISTA [Concomitant]
  3. METFORMIN HCL [Concomitant]
  4. EXJADE [Suspect]
     Indication: SIDEROBLASTIC ANAEMIA
     Dosage: 750 MG DAILY
     Route: 048
     Dates: start: 20070801
  5. FOLIC ACID [Concomitant]
  6. VITAMIN B6 [Concomitant]
     Dosage: UNK
  7. MULTI-VITAMINS [Concomitant]

REACTIONS (1)
  - WHITE BLOOD CELL COUNT INCREASED [None]
